FAERS Safety Report 9257271 (Version 1)
Quarter: 2013Q1

REPORT INFORMATION
  Report Type: Spontaneous
  Country: US (occurrence: US)
  Receive Date: 20121212
  Receipt Date: 20121212
  Transmission Date: 20140127
  Serious: No
  Sender: FDA-Public Use
  Company Number: 1209USA006550

PATIENT
  Age: 60 Year
  Sex: Male
  Weight: 101.6 kg

DRUGS (9)
  1. VICTRELIS (BOCEPREVIR) CAPSULE, 200 MG [Suspect]
     Route: 048
  2. PEGASYS (PEGINTERFERON ALFA-2A) INJECTION [Suspect]
  3. FLOVENT HFA (FLUTICASONE PROPIONATE) 110 UG [Concomitant]
  4. JANUVIA (SITAGLIPTIN PHOSPHATE) [Concomitant]
  5. TYLENOL (ACETAMINOPHEN) TABLET, 325 MG [Concomitant]
  6. BENADRYL (DIPHENHYDRAMINE HYDROCHLORIDE) TABLET, 25 MG [Concomitant]
  7. CORTISONE (CORTISONE) CREAM, 1% [Concomitant]
  8. PROCRIT (EPOETIN ALFA) INJECTION, 4000/ML [Concomitant]
  9. REBETOL (RIBAVIRIN) CAPSULE [Suspect]
     Route: 048

REACTIONS (5)
  - Retinal disorder [None]
  - Vision blurred [None]
  - Increased appetite [None]
  - Blood glucose increased [None]
  - Rash [None]
